FAERS Safety Report 21001690 (Version 2)
Quarter: 2022Q2

REPORT INFORMATION
  Report Type: Report from Study
  Country: US (occurrence: US)
  Receive Date: 20220624
  Receipt Date: 20220624
  Transmission Date: 20220721
  Serious: Yes (Other)
  Sender: FDA-Public Use
  Company Number: US-RECORDATI-2022002601

PATIENT

DRUGS (8)
  1. ISTURISA [Suspect]
     Active Substance: OSILODROSTAT PHOSPHATE
     Indication: Cushing^s syndrome
     Dosage: 2 MILLIGRAM, BID
     Route: 048
     Dates: start: 20210903, end: 20211003
  2. ISTURISA [Suspect]
     Active Substance: OSILODROSTAT PHOSPHATE
     Dosage: 3 MILLIGRAM, BID
     Route: 048
     Dates: start: 20211004, end: 20211028
  3. ISTURISA [Suspect]
     Active Substance: OSILODROSTAT PHOSPHATE
     Dosage: 4 MILLIGRAM, BID
     Route: 048
     Dates: start: 20211029, end: 20211110
  4. ISTURISA [Suspect]
     Active Substance: OSILODROSTAT PHOSPHATE
     Dosage: 6 MILLIGRAM
     Route: 048
     Dates: start: 20211111, end: 20211128
  5. ISTURISA [Suspect]
     Active Substance: OSILODROSTAT PHOSPHATE
     Dosage: 8 MILLIGRAM, BID
     Route: 048
     Dates: start: 20211129, end: 20211208
  6. ISTURISA [Suspect]
     Active Substance: OSILODROSTAT PHOSPHATE
     Dosage: 10 MILLIGRAM, BID
     Route: 048
     Dates: start: 20211209, end: 20220126
  7. SPIRONOLACTONE [Concomitant]
     Active Substance: SPIRONOLACTONE
     Indication: Hypertension
     Dosage: 25 MILLIGRAM, BID
     Route: 048
     Dates: start: 20211111
  8. BACTRUM T [Concomitant]
     Indication: Prophylaxis
     Dosage: 1 DOSAGE FORM, MONDAY, WEDNESDAY AND FRIDAY
     Route: 048
     Dates: start: 20211111, end: 20220201

REACTIONS (4)
  - Adrenal insufficiency [Recovering/Resolving]
  - Nausea [Recovering/Resolving]
  - Off label use [Recovered/Resolved]
  - Therapeutic response unexpected [Recovered/Resolved]

NARRATIVE: CASE EVENT DATE: 20210903
